FAERS Safety Report 4807730-8 (Version None)
Quarter: 2005Q4

REPORT INFORMATION
  Report Type: 
  Country: None (occurrence: None)
  Receive Date: 20051019
  Receipt Date: 20051006
  Transmission Date: 20060501
  Serious: Yes (Other)
  Sender: FDA-Public Use
  Company Number: 8012671

PATIENT

DRUGS (2)
  1. LEVETIRACETAM [Suspect]
  2. CARBAMAZEPINE [Concomitant]

REACTIONS (1)
  - ERYTHROPLASIA [None]
